FAERS Safety Report 6172176-X (Version None)
Quarter: 2009Q2

REPORT INFORMATION
  Report Type: 
  Country: None (occurrence: None)
  Receive Date: 20090429
  Receipt Date: 20090109
  Transmission Date: 20091009
  Serious: No
  Sender: FDA-Public Use
  Company Number: A0762932A

PATIENT
  Age: 36 Year
  Sex: Female

DRUGS (3)
  1. ZOFRAN [Suspect]
     Indication: HYPEREMESIS GRAVIDARUM
     Route: 042
  2. ZOFRAN [Suspect]
     Route: 048
  3. NO CONCURRENT MEDICATION [Concomitant]

REACTIONS (2)
  - DRUG EXPOSURE DURING PREGNANCY [None]
  - LIVE BIRTH [None]
